FAERS Safety Report 8405323-7 (Version None)
Quarter: 2012Q2

REPORT INFORMATION
  Report Type: 
  Country: None (occurrence: None)
  Receive Date: 20120604
  Receipt Date: 20120525
  Transmission Date: 20120825
  Serious: Yes (Life-Threatening)
  Sender: FDA-Public Use
  Company Number: GB-AMGEN-GBRSP2012033663

PATIENT
  Age: 13 Year
  Sex: Male
  Weight: 65.1 kg

DRUGS (1)
  1. ENBREL [Suspect]
     Indication: JUVENILE ARTHRITIS
     Dosage: 25 MG, UNK
     Route: 058
     Dates: start: 20060901, end: 20120228

REACTIONS (2)
  - DEPRESSION [None]
  - SUICIDE ATTEMPT [None]
